FAERS Safety Report 5346346-4 (Version None)
Quarter: 2007Q2

REPORT INFORMATION
  Report Type: 
  Country: None (occurrence: None)
  Receive Date: 20070605
  Receipt Date: 20070524
  Transmission Date: 20071010
  Serious: Yes (Other)
  Sender: FDA-Public Use
  Company Number: JP-PFIZER INC-2007042338

PATIENT
  Sex: Male
  Weight: 14.5 kg

DRUGS (5)
  1. ZITHROMAC [Suspect]
     Dates: start: 20070523, end: 20070501
  2. ASVERIN [Concomitant]
  3. MUCOSAL [Concomitant]
  4. PERIACTIN [Concomitant]
  5. MEPTIN [Concomitant]

REACTIONS (1)
  - DISORIENTATION [None]
